FAERS Safety Report 6715009-2 (Version None)
Quarter: 2010Q2

REPORT INFORMATION
  Report Type: 
  Country: None (occurrence: None)
  Receive Date: 20100507
  Receipt Date: 20100426
  Transmission Date: 20101027
  Serious: Yes (Other)
  Sender: FDA-Public Use
  Company Number: GB-JNJFOC-20100306361

PATIENT
  Age: 61 Year
  Sex: Female
  Weight: 59 kg

DRUGS (10)
  1. REMICADE [Suspect]
     Indication: RHEUMATOID ARTHRITIS
     Route: 042
  2. REMICADE [Suspect]
     Dosage: DOSE REPORTED AS 177
     Route: 042
  3. METHOTREXATE [Concomitant]
  4. CALCI-CHEW [Concomitant]
  5. ACETAMINOPHEN WITH PROPOXYPHENE HCL TAB [Concomitant]
  6. ESTRADERM [Concomitant]
  7. HYPROMELLOSE [Concomitant]
  8. INDOMETHACIN [Concomitant]
  9. MISOPROSTOL [Concomitant]
  10. RISEDRONATE SODIUM [Concomitant]

REACTIONS (1)
  - METASTATIC SQUAMOUS CELL CARCINOMA [None]
